FAERS Safety Report 4944324-8 (Version None)
Quarter: 2006Q1

REPORT INFORMATION
  Report Type: 
  Country: None (occurrence: None)
  Receive Date: 20060315
  Receipt Date: 20050414
  Transmission Date: 20060701
  Serious: Yes (Hospitalization)
  Sender: FDA-Public Use
  Company Number: US-MERCK-0504USA02407

PATIENT
  Age: 61 Year
  Sex: Male
  Weight: 80 kg

DRUGS (1)
  1. VIOXX [Suspect]
     Indication: ANALGESIC EFFECT
     Route: 048
     Dates: start: 19990101, end: 20030101

REACTIONS (2)
  - INJURY [None]
  - MYOCARDIAL INFARCTION [None]
